FAERS Safety Report 7919587-7 (Version None)
Quarter: 2011Q4

REPORT INFORMATION
  Report Type: 
  Country: None (occurrence: None)
  Receive Date: 20111116
  Receipt Date: 20111116
  Transmission Date: 20120403
  Serious: Yes (Hospitalization)
  Sender: FDA-Public Use
  Company Number: None

PATIENT
  Age: 80 Year
  Sex: Female
  Weight: 53 kg

DRUGS (8)
  1. VIT C [Concomitant]
  2. VIT D3 [Concomitant]
  3. LOVAZA [Concomitant]
  4. VITAMIN B-12 [Concomitant]
  5. ASPIRIN [Suspect]
     Indication: ARTHRALGIA
     Dosage: 325 BID PO CHRONIC
     Route: 048
  6. CA [Concomitant]
  7. MAGNESIUM [Concomitant]
  8. M.V.I. [Concomitant]

REACTIONS (4)
  - HAEMATOCHEZIA [None]
  - MICROCYTIC ANAEMIA [None]
  - DIVERTICULUM [None]
  - GASTROINTESTINAL ULCER [None]
